FAERS Safety Report 6068072-9 (Version None)
Quarter: 2009Q1

REPORT INFORMATION
  Report Type: 
  Country: None (occurrence: None)
  Receive Date: 20090206
  Receipt Date: 20090127
  Transmission Date: 20090719
  Serious: Yes (Hospitalization)
  Sender: FDA-Public Use
  Company Number: DE-AMGEN-UK330345

PATIENT
  Sex: Female

DRUGS (5)
  1. ARANESP [Suspect]
     Indication: DRUG USE FOR UNKNOWN INDICATION
     Route: 058
     Dates: start: 20060223, end: 20060223
  2. NEULASTA [Suspect]
     Indication: DRUG USE FOR UNKNOWN INDICATION
     Route: 058
     Dates: start: 20060224, end: 20060224
  3. DOCETAXEL [Suspect]
     Route: 042
     Dates: start: 20060223, end: 20060223
  4. ADRIAMYCIN PFS [Suspect]
     Route: 042
     Dates: start: 20060223, end: 20060223
  5. CYCLOPHOSPHAMIDE [Suspect]
     Route: 042
     Dates: start: 20060223, end: 20060223

REACTIONS (4)
  - ERYTHEMA [None]
  - LYMPHANGITIS [None]
  - OEDEMA PERIPHERAL [None]
  - PAIN IN EXTREMITY [None]
